FAERS Safety Report 6019867-9 (Version None)
Quarter: 2008Q4

REPORT INFORMATION
  Report Type: 
  Country: None (occurrence: None)
  Receive Date: 20081224
  Receipt Date: 20081219
  Transmission Date: 20090506
  Serious: Yes (Other)
  Sender: FDA-Public Use
  Company Number: US-GENENTECH-273747

PATIENT
  Age: 78 Year
  Sex: Male

DRUGS (3)
  1. BEVACIZUMAB [Suspect]
     Indication: RETINAL HAEMORRHAGE
     Dosage: 1.25 MG, UNK
     Route: 031
  2. ACTIVASE [Suspect]
     Indication: RETINAL HAEMORRHAGE
     Dosage: 50 A?G, UNK
     Route: 031
  3. SF6 (SULFUR HEXAFLUORIDE) [Suspect]
     Indication: RETINAL HAEMORRHAGE
     Route: 031

REACTIONS (1)
  - INTRAOCULAR PRESSURE INCREASED [None]
